FAERS Safety Report 8900131 (Version 1)
Quarter: 2012Q4

REPORT INFORMATION
  Report Type: 
  Country: US (occurrence: US)
  Receive Date: 20121109
  Receipt Date: 20121109
  Transmission Date: 20130627
  Serious: Yes (Hospitalization)
  Sender: FDA-Public Use
  Company Number: US-TEVA-369020USA

PATIENT
  Age: 63 Year
  Sex: Female

DRUGS (9)
  1. IBUPROFEN [Suspect]
     Indication: BACK PAIN
     Route: 065
  2. LISINOPRIL [Suspect]
     Dosage: 10mg daily
     Route: 065
  3. SODIUM CHLORIDE [Suspect]
     Indication: FLUID REPLACEMENT
     Route: 042
  4. SODIUM CHLORIDE [Suspect]
     Indication: FLUID REPLACEMENT
     Dosage: overnight
     Route: 042
  5. SODIUM CHLORIDE [Suspect]
     Indication: FLUID REPLACEMENT
     Dosage: over 16h
     Route: 042
  6. SODIUM CHLORIDE [Suspect]
     Dosage: 8 g/d
     Route: 048
  7. FLUDROCORTISONE [Suspect]
     Dosage: 0.1 mg/d
     Route: 065
  8. METOPROLOL [Concomitant]
     Route: 065
  9. ASPIRIN [Concomitant]
     Dosage: 81mg daily
     Route: 065

REACTIONS (5)
  - Glomerulonephritis membranous [Recovering/Resolving]
  - Renal salt-wasting syndrome [Recovering/Resolving]
  - Hypoaldosteronism [Recovering/Resolving]
  - Accelerated hypertension [Unknown]
  - Oedema [Unknown]
